FAERS Safety Report 15868134 (Version 3)
Quarter: 2019Q2

REPORT INFORMATION
  Report Type: Spontaneous
  Country: US (occurrence: US)
  Receive Date: 20190125
  Receipt Date: 20190404
  Transmission Date: 20190711
  Serious: Yes (Hospitalization, Disabling, Other)
  Sender: FDA-Public Use
  Company Number: US-PFIZER INC-2019031434

PATIENT
  Age: 44 Year
  Sex: Female
  Weight: 91 kg

DRUGS (39)
  1. BROVANA [Concomitant]
     Active Substance: ARFORMOTEROL TARTRATE
     Indication: RESPIRATION ABNORMAL
     Dosage: 15 UG, 2X/DAY
  2. PLAQUENIL [Concomitant]
     Active Substance: HYDROXYCHLOROQUINE SULFATE
     Dosage: 200 MG, 2X/DAY
     Route: 048
     Dates: start: 201605
  3. SYSTANE BALANCE [Concomitant]
     Active Substance: PROPYLENE GLYCOL
     Dosage: 2 GTT, AS NEEDED (1 DROP INTO BOTH EYES 2 TIMES DAILY)
  4. K-DUR [Concomitant]
     Active Substance: POTASSIUM CHLORIDE
     Dosage: 20 MEQ, 2X/DAY
     Route: 048
  5. SEROQUEL [Concomitant]
     Active Substance: QUETIAPINE FUMARATE
     Dosage: 150 MG, 1X/DAY (BEDTIME 1 1/2)
     Route: 048
  6. RESTASIS [Concomitant]
     Active Substance: CYCLOSPORINE
     Dosage: UNK
  7. PROAIR HFA [Concomitant]
     Active Substance: ALBUTEROL SULFATE
     Indication: WHEEZING
     Dosage: UNK, AS NEEDED (INHALE 2 PUFFS INTO THE LUNGS EVERY 6 (SIX) HOURS )
     Route: 055
  8. CALCIUM W/VITAMIN D3 [Concomitant]
     Active Substance: CALCIUM\CHOLECALCIFEROL
     Dosage: 1 DF, DAILY(CALCIUM 600 MG/VIT D3 800 IU)
  9. OMEGA-3 FISH OIL [Concomitant]
     Active Substance: FISH OIL\OMEGA-3 FATTY ACIDS
     Dosage: UNK, DAILY (TAKE (2) AM, 1-1,000 PM DAILY; TOTAL TAKE 3,400 MG )
     Route: 048
  10. PAMELOR [Concomitant]
     Active Substance: NORTRIPTYLINE HYDROCHLORIDE
     Dosage: 25 MG, 1X/DAY (AT BEDTIME. FOR 2 WEEKS, THEN STOP)
     Route: 048
  11. XIIDRA [Concomitant]
     Active Substance: LIFITEGRAST
     Dosage: 2 GTT, 2X/DAY
  12. BUDESONIDE. [Concomitant]
     Active Substance: BUDESONIDE
     Indication: RESPIRATION ABNORMAL
     Dosage: UNK, AS NEEDED (TWO PUFFS AS NEEDED)
  13. PRILOSEC [Concomitant]
     Active Substance: OMEPRAZOLE MAGNESIUM
     Dosage: 40 MG, 2X/DAY
     Route: 048
  14. NORTRIPTYLINE [Concomitant]
     Active Substance: NORTRIPTYLINE
     Indication: DIABETIC NEUROPATHY
     Dosage: 25 MG, 1X/DAY (AT BEDTIME FOR 2 WEEKS, THEN STOP)
  15. LYRICA [Suspect]
     Active Substance: PREGABALIN
     Indication: FIBROMYALGIA
     Dosage: 225 MG, 2X/DAY
     Route: 048
     Dates: start: 201702
  16. AMOXIL [Concomitant]
     Active Substance: AMOXICILLIN
     Dosage: 20000 MG, UNK (ONE HOUR PRIOR TO PROCEDURE)
     Route: 048
  17. VOLTAREN [DICLOFENAC] [Concomitant]
     Active Substance: DICLOFENAC SODIUM
     Indication: ARTHRALGIA
     Dosage: 1 G, AS NEEDED (3 (THREE) TIMES DAILY)
     Route: 061
  18. LASIX [Concomitant]
     Active Substance: FUROSEMIDE
     Dosage: 80 MG, 2X/DAY
     Route: 048
  19. GLUCOSAMINE CHONDROITIN + MSM [Concomitant]
     Active Substance: CHONDROITIN SULFATE (BOVINE)\DIMETHYL SULFONE\GLUCOSAMINE SULFATE
     Dosage: 1 DF, 1X/DAY
  20. REFRESH P.M. [Concomitant]
     Active Substance: MINERAL OIL\PETROLATUM
     Dosage: UNK, DAILY (0.12 OZ/APPLY TO INSIDE OF EYE LID, BOTH EYES DAILY AT NIGHT)
  21. REFRESH LIQUIGEL [Concomitant]
     Active Substance: CARBOXYMETHYLCELLULOSE SODIUM
     Dosage: 1 GTT, 2X/DAY (0.5 FLOZ)
  22. TYLENOL [Concomitant]
     Active Substance: ACETAMINOPHEN
     Indication: PAIN
     Dosage: 500 MG, AS NEEDED (EVERY 6 (SIX) HOURS)
     Route: 048
  23. BUSPAR [Concomitant]
     Active Substance: BUSPIRONE HYDROCHLORIDE
     Dosage: 45 MG, DAILY (TAKE 2 TABLETS IN THE AM AND TAKE ONE TAB IN PM)
  24. BENTYL [Concomitant]
     Active Substance: DICYCLOMINE HYDROCHLORIDE
     Dosage: 20 MG, 2X/DAY
     Route: 048
  25. DULOXETINE HCL [Concomitant]
     Active Substance: DULOXETINE HYDROCHLORIDE
     Dosage: 30 MG, DAILY
     Route: 048
  26. MELATONIN [Concomitant]
     Active Substance: MELATONIN
     Dosage: 5 MG, UNK
     Route: 048
  27. REMERON [Concomitant]
     Active Substance: MIRTAZAPINE
     Dosage: 15 MG, 1X/DAY (AT BEDTIME)
     Route: 048
  28. PERCOCET [Concomitant]
     Active Substance: ACETAMINOPHEN\OXYCODONE HYDROCHLORIDE
     Dosage: 1 DF, DAILY(WITH BREAKFAST/OXYCODONE:7.5MG/ACETAMINOPHEN:325 MG)
     Route: 048
  29. SEROQUEL [Concomitant]
     Active Substance: QUETIAPINE FUMARATE
     Dosage: 300 MG, 1X/DAY (AT 5 PM)
     Route: 048
  30. ACIDOPHILUS/PECTIN [Concomitant]
     Dosage: 1 DF, 1X/DAY (AT NOON - 2 BILLION)
  31. NORVASC [Concomitant]
     Active Substance: AMLODIPINE BESYLATE
     Dosage: 5 MG, DAILY
     Route: 048
  32. ASPIRIN (E.C.) [Concomitant]
     Active Substance: ASPIRIN
     Dosage: 81 MG, DAILY
     Route: 048
  33. FERROUS GLUCONATE [Concomitant]
     Active Substance: FERROUS GLUCONATE
     Dosage: 325 MG, DAILY
     Route: 048
  34. MS CONTIN [Concomitant]
     Active Substance: MORPHINE SULFATE
     Dosage: 15 MG, 3X/DAY (1 IN AM AND 2 AT NIGHT)
     Route: 048
  35. LYRICA [Suspect]
     Active Substance: PREGABALIN
     Indication: LUPUS-LIKE SYNDROME
     Dosage: 225 MG, 2X/DAY
     Route: 048
     Dates: start: 1995
  36. PROAIR HFA [Concomitant]
     Active Substance: ALBUTEROL SULFATE
     Indication: DYSPNOEA
  37. PULMICORT TURBUHALER [Concomitant]
     Active Substance: BUDESONIDE
     Dosage: 0.5 MG, 2X/DAY
  38. OMEGA-3 FISH OIL [Concomitant]
     Active Substance: FISH OIL\OMEGA-3 FATTY ACIDS
     Dosage: UNK, DAILY (TAKE (2) AM, 1-1,000 PM DAILY; TOTAL TAKE 3,400 MG )
     Route: 048
  39. MICOTIN [MICONAZOLE NITRATE] [Concomitant]
     Dosage: UNK
     Route: 061

REACTIONS (7)
  - Feeling abnormal [Not Recovered/Not Resolved]
  - Dizziness [Unknown]
  - Muscular weakness [Unknown]
  - Spinal osteoarthritis [Not Recovered/Not Resolved]
  - Systemic lupus erythematosus [Not Recovered/Not Resolved]
  - Arthritis [Not Recovered/Not Resolved]
  - Bipolar disorder [Not Recovered/Not Resolved]

NARRATIVE: CASE EVENT DATE: 199509
